FAERS Safety Report 18890368 (Version 1)
Quarter: 2021Q1

REPORT INFORMATION
  Report Type: Spontaneous
  Country: CA (occurrence: CA)
  Receive Date: 20210214
  Receipt Date: 20210214
  Transmission Date: 20210420
  Serious: Yes (Other)
  Sender: FDA-Public Use
  Company Number: CA-JNJFOC-20210220651

PATIENT
  Age: 62 Year
  Sex: Female

DRUGS (3)
  1. METHOTREXATE. [Suspect]
     Active Substance: METHOTREXATE
     Indication: PRODUCT USED FOR UNKNOWN INDICATION
     Route: 065
  2. STELARA [Suspect]
     Active Substance: USTEKINUMAB
     Indication: PSORIATIC ARTHROPATHY
     Route: 058
  3. DESOXIMETASONE. [Concomitant]
     Active Substance: DESOXIMETASONE

REACTIONS (3)
  - Urinary tract infection bacterial [Unknown]
  - Abdominal pain upper [Unknown]
  - Hepatic enzyme increased [Unknown]
